FAERS Safety Report 5352560-4 (Version None)
Quarter: 2007Q2

REPORT INFORMATION
  Report Type: 
  Country: None (occurrence: None)
  Receive Date: 20070607
  Receipt Date: 20070109
  Transmission Date: 20071010
  Serious: Yes (Hospitalization)
  Sender: FDA-Public Use
  Company Number: DE-2007-001156

PATIENT
  Age: 57 Year
  Sex: Female
  Weight: 45 kg

DRUGS (6)
  1. QUADRAMET [Suspect]
     Indication: PALLIATIVE CARE
     Dosage: 176 GBQ
     Dates: start: 20061220
  2. MORPHINE [Concomitant]
  3. NEURONTIN [Concomitant]
  4. NEXIAM (ESOMEPRAZOLE) [Concomitant]
  5. VOLTAREN [Concomitant]
  6. SEROTONIN ANTAGONISTS [Concomitant]

REACTIONS (3)
  - AGITATION [None]
  - BURNING SENSATION [None]
  - DERMATITIS ALLERGIC [None]
